FAERS Safety Report 4525060-9 (Version None)
Quarter: 2004Q4

REPORT INFORMATION
  Report Type: 
  Country: None (occurrence: None)
  Receive Date: 20041117
  Receipt Date: 20031107
  Transmission Date: 20050328
  Serious: Yes (Other)
  Sender: FDA-Public Use
  Company Number: C2003-2984.01

PATIENT
  Age: 55 Year
  Sex: Female

DRUGS (17)
  1. CLOZAPINE [Suspect]
     Indication: SCHIZOPHRENIA, PARANOID TYPE
     Dosage: 300MG Q HS, ORAL
     Route: 048
     Dates: start: 20030701, end: 20031031
  2. CLOZAPINE [Suspect]
     Indication: SCHIZOPHRENIA, PARANOID TYPE
     Dosage: 300MG Q HS, ORAL
     Route: 048
     Dates: start: 20031102, end: 20031122
  3. ARIPIPRAZOLE [Concomitant]
  4. DIVALPROEX SODIUM [Concomitant]
  5. GEMFIBROZIL [Concomitant]
  6. HYDROCHLOROTHIAZIDE [Concomitant]
  7. INSULIN [Concomitant]
  8. LISINOPRIL [Concomitant]
  9. METFORMIN HCL [Concomitant]
  10. ROSIGLITAZONE MALEATE [Concomitant]
  11. TRAZODONE HCL [Concomitant]
  12. VENLAFAXINE HCL [Concomitant]
  13. CLONAZEPAM [Concomitant]
  14. HALOPERIDOL [Concomitant]
  15. LORAZEPAM [Concomitant]
  16. PNEUMOCOCCAL POLYSACCHARIDE VACCINE [Concomitant]
  17. INSULIN LISPRO [Concomitant]

REACTIONS (1)
  - LEUKOPENIA [None]
